FAERS Safety Report 13081727 (Version 2)
Quarter: 2021Q3

REPORT INFORMATION
  Report Type: Spontaneous
  Country: US (occurrence: US)
  Receive Date: 20170103
  Receipt Date: 20210817
  Transmission Date: 20211014
  Serious: No
  Sender: FDA-Public Use
  Company Number: US-JAZZ-JPI-P-029729

PATIENT
  Sex: Female

DRUGS (1)
  1. XYREM [Suspect]
     Active Substance: SODIUM OXYBATE
     Indication: FIBROMYALGIA
     Dosage: 3.75 GRAM, BID
     Route: 048
     Dates: start: 20080506, end: 202103

REACTIONS (1)
  - Arthritis [Not Recovered/Not Resolved]
